FAERS Safety Report 12162091 (Version 2)
Quarter: 2016Q2

REPORT INFORMATION
  Report Type: Report from Study
  Country: AR (occurrence: AR)
  Receive Date: 20160309
  Receipt Date: 20160407
  Transmission Date: 20160815
  Serious: Yes (Other)
  Sender: FDA-Public Use
  Company Number: PHHY2016AR029967

PATIENT
  Sex: Female

DRUGS (4)
  1. BISACODYL. [Concomitant]
     Active Substance: BISACODYL
     Indication: GASTROINTESTINAL DISORDER
     Route: 065
  2. SEEBRI BREEZHALER [Suspect]
     Active Substance: GLYCOPYRROLATE
     Indication: CHRONIC OBSTRUCTIVE PULMONARY DISEASE
     Dosage: 2 DF, QD
     Route: 065
  3. ONBREZ BREEZHALER [Suspect]
     Active Substance: INDACATEROL
     Indication: CHRONIC OBSTRUCTIVE PULMONARY DISEASE
     Dosage: 1 DF, QD
     Route: 065
  4. ULTIBRO BREEZHALER [Suspect]
     Active Substance: GLYCOPYRRONIUM\INDACATEROL
     Indication: CHRONIC OBSTRUCTIVE PULMONARY DISEASE
     Dosage: 1 DF, QD
     Route: 065

REACTIONS (6)
  - Tachycardia [Not Recovered/Not Resolved]
  - Inappropriate schedule of drug administration [Unknown]
  - Chest pain [Unknown]
  - Pulmonary function test decreased [Not Recovered/Not Resolved]
  - Agitation [Not Recovered/Not Resolved]
  - Choking [Unknown]
